FAERS Safety Report 23294260 (Version 1)
Quarter: 2023Q4

REPORT INFORMATION
  Report Type: Spontaneous
  Country: ES (occurrence: ES)
  Receive Date: 20231213
  Receipt Date: 20231213
  Transmission Date: 20240110
  Serious: Yes (Hospitalization)
  Sender: FDA-Public Use
  Company Number: None

PATIENT
  Age: 83 Year
  Sex: Female
  Weight: 58 kg

DRUGS (2)
  1. IRINOTECAN [Suspect]
     Active Substance: IRINOTECAN
     Indication: Colorectal adenocarcinoma
     Dosage: 150MG IV EVERY 14 DAYS (THE PATIENT RECEIVED 4 CYCLES, THE 1ST 150MG, THE REMAINING 3 AT 140MG DUE T
     Route: 042
     Dates: start: 20230712, end: 20230824
  2. AVASTIN 25 MG/ML CONCENTRATE FOR SOLUTION FOR INFUSION, 1 vial of 16 m [Concomitant]
     Indication: Colorectal adenocarcinoma
     Dosage: 580MG EVERY 14 DAYS??FOA : CONCENTRATE FOR SOLUTION FOR INFUSION
     Route: 042
     Dates: start: 20230125

REACTIONS (2)
  - Diarrhoea [Recovered/Resolved]
  - Acute kidney injury [Recovered/Resolved]

NARRATIVE: CASE EVENT DATE: 20230830
